FAERS Safety Report 10930601 (Version 1)
Quarter: 2015Q1

REPORT INFORMATION
  Report Type: Spontaneous
  Country: US (occurrence: US)
  Receive Date: 20150319
  Receipt Date: 20150319
  Transmission Date: 20150721
  Serious: Yes (Life-Threatening, Hospitalization, Disabling, Other)
  Sender: FDA-Public Use
  Company Number: US-PFIZER INC-2015097223

PATIENT
  Age: 52 Year
  Sex: Female
  Weight: 59 kg

DRUGS (5)
  1. PREDNISONE. [Suspect]
     Active Substance: PREDNISONE
     Route: 048
  2. NITROGLYCERIN. [Concomitant]
     Active Substance: NITROGLYCERIN
     Dosage: UNK
  3. CLOPIDOGREL [Suspect]
     Active Substance: CLOPIDOGREL BISULFATE
     Route: 048
  4. PLAVIX [Suspect]
     Active Substance: CLOPIDOGREL BISULFATE
     Route: 048
  5. INDERAL LA [Suspect]
     Active Substance: PROPRANOLOL HYDROCHLORIDE
     Indication: MIGRAINE
     Dosage: TWO 80MG CAPSULES DAILY
     Route: 048
     Dates: start: 1994

REACTIONS (13)
  - Anaphylactic reaction [Unknown]
  - Fluid retention [Unknown]
  - Dyspnoea [Unknown]
  - Heart rate irregular [Unknown]
  - Coronary artery disease [Unknown]
  - Gait disturbance [Unknown]
  - Coronary vascular graft occlusion [Unknown]
  - Quality of life decreased [Unknown]
  - Limb discomfort [Unknown]
  - Coronary artery disease [Unknown]
  - Blood pressure abnormal [Unknown]
  - Chest pain [Unknown]
  - Myocardial infarction [Unknown]

NARRATIVE: CASE EVENT DATE: 200705
